FAERS Safety Report 5314508-8 (Version None)
Quarter: 2007Q2

REPORT INFORMATION
  Report Type: 
  Country: None (occurrence: None)
  Receive Date: 20070501
  Receipt Date: 20070501
  Transmission Date: 20071010
  Serious: Yes (Hospitalization)
  Sender: FDA-Public Use
  Company Number: None

PATIENT
  Age: 60 Year
  Sex: Male
  Weight: 77.5651 kg

DRUGS (2)
  1. OXALIPLATIN [Suspect]
     Indication: OESOPHAGEAL CARCINOMA
     Dosage: 100 MG D 1 AND D 8 IV DRIP
     Route: 041
  2. XELODA [Suspect]
     Indication: OESOPHAGEAL CARCINOMA
     Dosage: 1500 MG BID X10 DAYS PO
     Route: 048

REACTIONS (8)
  - ABDOMINAL PAIN UPPER [None]
  - BLOOD POTASSIUM DECREASED [None]
  - DEHYDRATION [None]
  - DIARRHOEA [None]
  - FREQUENT BOWEL MOVEMENTS [None]
  - NAUSEA [None]
  - PYREXIA [None]
  - VOMITING [None]
